FAERS Safety Report 20281919 (Version 2)
Quarter: 2022Q1

REPORT INFORMATION
  Report Type: Spontaneous
  Country: US (occurrence: US)
  Receive Date: 20220103
  Receipt Date: 20220202
  Transmission Date: 20220423
  Serious: No
  Sender: FDA-Public Use
  Company Number: US-BAUSCH-BL-2021-042056

PATIENT
  Sex: Female

DRUGS (2)
  1. TRETINOIN [Suspect]
     Active Substance: TRETINOIN
     Indication: Product used for unknown indication
     Route: 061
     Dates: start: 20211004, end: 202110
  2. NU-DERM SYSTEM NORMAL-OILY SKIN TRANSFORMATION [Suspect]
     Active Substance: HYDROQUINONE\OCTINOXATE\ZINC OXIDE
     Indication: Product used for unknown indication
     Dosage: AS DIRECTED
     Route: 061
     Dates: start: 20211004, end: 202110

REACTIONS (2)
  - Application site erythema [Recovered/Resolved]
  - Application site warmth [Recovered/Resolved]

NARRATIVE: CASE EVENT DATE: 20211001
